FAERS Safety Report 8400703-8 (Version None)
Quarter: 2012Q2

REPORT INFORMATION
  Report Type: 
  Country: None (occurrence: None)
  Receive Date: 20120531
  Receipt Date: 20120516
  Transmission Date: 20120825
  Serious: Yes (Hospitalization, Other)
  Sender: FDA-Public Use
  Company Number: US-VALEANT-2012VX002322

PATIENT
  Age: 61 Year
  Sex: Female
  Weight: 122 kg

DRUGS (4)
  1. PRIMIDONE [Suspect]
     Indication: EPILEPSY
     Route: 065
  2. DILANTIN [Suspect]
     Indication: EPILEPSY
     Route: 048
  3. DILANTIN [Suspect]
     Route: 048
  4. TOPAMAX [Suspect]
     Indication: EPILEPSY
     Route: 065

REACTIONS (11)
  - SENSORY LOSS [None]
  - SPINAL DEFORMITY [None]
  - NEUROPATHY PERIPHERAL [None]
  - MACULAR DEGENERATION [None]
  - ABDOMINAL PAIN UPPER [None]
  - ABASIA [None]
  - TYPE 2 DIABETES MELLITUS [None]
  - FALL [None]
  - OSTEOPOROSIS [None]
  - ARTHRITIS [None]
  - FEMUR FRACTURE [None]
